FAERS Safety Report 5272629-2 (Version None)
Quarter: 2007Q1

REPORT INFORMATION
  Report Type: 
  Country: None (occurrence: None)
  Receive Date: 20070320
  Receipt Date: 20070320
  Transmission Date: 20070707
  Serious: No
  Sender: FDA-Public Use
  Company Number: None

PATIENT
  Sex: Female
  Weight: 78.0187 kg

DRUGS (2)
  1. LEVAQUIN [Suspect]
     Indication: LARYNGITIS
     Dosage: ONCE A DAY 5 DAUS
     Dates: start: 20070312, end: 20070314
  2. LEVAQUIN [Suspect]
     Indication: NASOPHARYNGITIS
     Dosage: ONCE A DAY 5 DAUS
     Dates: start: 20070312, end: 20070314

REACTIONS (4)
  - ARTHRALGIA [None]
  - MOVEMENT DISORDER [None]
  - MYALGIA [None]
  - RASH MACULAR [None]
